FAERS Safety Report 8535899-0 (Version None)
Quarter: 2012Q3

REPORT INFORMATION
  Report Type: 
  Country: None (occurrence: None)
  Receive Date: 20120725
  Receipt Date: 20120720
  Transmission Date: 20120928
  Serious: Yes (Disabling)
  Sender: FDA-Public Use
  Company Number: PHHY2012MX063126

PATIENT
  Sex: Female

DRUGS (5)
  1. ZOLEDRONOC ACID [Suspect]
     Indication: OSTEOPOROSIS
     Dosage: 5 MG, YEARLY
     Route: 042
     Dates: start: 20110601
  2. ACENOCOUMAROL [Concomitant]
     Indication: COAGULOPATHY
     Dosage: HALF A TABLET PER DAY
     Dates: start: 20110101
  3. DIGOXIN [Concomitant]
     Indication: ARRHYTHMIA
     Dosage: 1 DF, UNK
  4. LEVOTHYROXINE SODIUM [Concomitant]
     Indication: THYROID DISORDER
     Dosage: 1 DF, UNK
  5. ANTIBIOTICS [Suspect]

REACTIONS (2)
  - DEAFNESS [None]
  - HEARING IMPAIRED [None]
